FAERS Safety Report 6572812-X (Version None)
Quarter: 2010Q1

REPORT INFORMATION
  Report Type: 
  Country: None (occurrence: None)
  Receive Date: 20100205
  Receipt Date: 20100129
  Transmission Date: 20100710
  Serious: Yes (Death)
  Sender: FDA-Public Use
  Company Number: US-AMGEN-US386049

PATIENT
  Sex: Female
  Weight: 54.5 kg

DRUGS (2)
  1. NPLATE [Suspect]
     Indication: IDIOPATHIC THROMBOCYTOPENIC PURPURA
     Route: 058
     Dates: start: 20090220, end: 20090227
  2. PREDNISONE [Concomitant]
     Route: 048
     Dates: start: 20090105

REACTIONS (1)
  - DEATH [None]
